FAERS Safety Report 8349172 (Version 6)
Quarter: 2012Q4

REPORT INFORMATION
  Report Type: 
  Country: US (occurrence: US)
  Receive Date: 20120123
  Receipt Date: 20120919
  Transmission Date: 20130627
  Serious: Yes (Hospitalization, Disabling, Other)
  Sender: FDA-Public Use
  Company Number: US-009507513-1201USA02542

PATIENT

DRUGS (4)
  1. FOSAMAX [Suspect]
     Indication: OSTEOPENIA
     Route: 048
     Dates: start: 20011022
  2. FOSAMAX [Suspect]
     Dosage: 70 mg, UNK
     Route: 048
     Dates: start: 20031111
  3. FOSAMAX [Suspect]
     Dosage: 70 mg, QW
     Route: 048
     Dates: start: 200101, end: 20090122
  4. ACTONEL [Suspect]
     Indication: OSTEOPENIA
     Dosage: 150 mg, QM
     Route: 048
     Dates: start: 20090122, end: 20100120

REACTIONS (44)
  - Femur fracture [Not Recovered/Not Resolved]
  - Renal failure chronic [Unknown]
  - Hysterectomy [Unknown]
  - Loss of consciousness [Unknown]
  - Cerebrovascular accident [Unknown]
  - Hypertension [Unknown]
  - Hypercholesterolaemia [Unknown]
  - Tooth impacted [Unknown]
  - Scoliosis [Unknown]
  - Impaired healing [Unknown]
  - Treatment failure [Unknown]
  - Osteoporosis [Unknown]
  - Intervertebral disc protrusion [Unknown]
  - Lumbar radiculopathy [Unknown]
  - Osteoarthritis [Unknown]
  - Arthropathy [Unknown]
  - Bronchitis [Unknown]
  - Weight increased [Recovered/Resolved]
  - Lip disorder [Unknown]
  - Type 2 diabetes mellitus [Unknown]
  - Neuropathy peripheral [Unknown]
  - Coronary artery disease [Unknown]
  - Peripheral vascular disorder [Unknown]
  - Asthma [Unknown]
  - Chronic obstructive pulmonary disease [Unknown]
  - Hypothyroidism [Unknown]
  - Osteoarthritis [Unknown]
  - Gastroenteritis [Unknown]
  - Rhinitis allergic [Unknown]
  - Pharyngitis [Unknown]
  - Upper respiratory tract infection [Unknown]
  - Anaemia [Unknown]
  - Pulmonary granuloma [Unknown]
  - Asthenia [Unknown]
  - Rhinitis [Unknown]
  - Patellofemoral pain syndrome [Unknown]
  - Intervertebral disc degeneration [Unknown]
  - Haemorrhoids [Unknown]
  - Myalgia [Unknown]
  - Gastritis [Unknown]
  - Diarrhoea [Unknown]
  - Muscle spasms [Unknown]
  - Rash [Unknown]
  - Constipation [Unknown]
